FAERS Safety Report 21961514 (Version 2)
Quarter: 2023Q1

REPORT INFORMATION
  Report Type: Report from Study
  Country: NL (occurrence: NL)
  Receive Date: 20230207
  Receipt Date: 20230320
  Transmission Date: 20230417
  Serious: Yes (Life-Threatening, Hospitalization, Other)
  Sender: FDA-Public Use
  Company Number: NL-IPSEN Group, Research and Development-2022-11967

PATIENT
  Age: 37 Year
  Sex: Male

DRUGS (1)
  1. LANREOTIDE ACETATE [Suspect]
     Active Substance: LANREOTIDE ACETATE
     Indication: Neuroendocrine tumour
     Route: 058
     Dates: start: 20220331

REACTIONS (9)
  - Intestinal obstruction [Not Recovered/Not Resolved]
  - Abdominal pain upper [Recovering/Resolving]
  - Flatulence [Not Recovered/Not Resolved]
  - Hot flush [Recovered/Resolved]
  - Bowel movement irregularity [Recovering/Resolving]
  - Injection site pain [Recovered/Resolved]
  - Faeces discoloured [Recovering/Resolving]
  - Abdominal pain [Recovering/Resolving]
  - Injection site discomfort [Recovered/Resolved]

NARRATIVE: CASE EVENT DATE: 20220331
